FAERS Safety Report 9840655 (Version 1)
Quarter: 2014Q1

REPORT INFORMATION
  Report Type: Spontaneous
  Country: US (occurrence: US)
  Receive Date: 20140124
  Receipt Date: 20140124
  Transmission Date: 20141002
  Serious: No
  Sender: FDA-Public Use
  Company Number: US-PFIZER INC-2014021492

PATIENT
  Sex: Female

DRUGS (2)
  1. ZOLOFT [Suspect]
     Dosage: 100 MG, 1X/DAY
     Dates: end: 2013
  2. ZOLOFT [Suspect]
     Dosage: 200 MG (100MG TWO TABLETS), AT ONCE
     Dates: start: 20140121

REACTIONS (9)
  - Extra dose administered [Unknown]
  - Disorientation [Unknown]
  - Feeling abnormal [Unknown]
  - Tremor [Unknown]
  - Vomiting [Unknown]
  - Nausea [Unknown]
  - Mood altered [Unknown]
  - Malaise [Unknown]
  - Panic attack [Unknown]
